FAERS Safety Report 10412910 (Version 1)
Quarter: 2014Q3

REPORT INFORMATION
  Report Type: Spontaneous
  Country: DE (occurrence: DE)
  Receive Date: 20140827
  Receipt Date: 20140827
  Transmission Date: 20150326
  Serious: Yes (Other)
  Sender: FDA-Public Use
  Company Number: GXKR2014DE003100

PATIENT
  Sex: Male

DRUGS (1)
  1. METOPROLOLSUCCINAT 1A PHARMA [Suspect]
     Active Substance: METOPROLOL SUCCINATE
     Indication: HYPERTENSION
     Dosage: 1-0-1/2 DF DAILY
     Route: 048

REACTIONS (1)
  - Ventricular fibrillation [Unknown]
